FAERS Safety Report 21598023 (Version 1)
Quarter: 2022Q4

REPORT INFORMATION
  Report Type: Spontaneous
  Country: US (occurrence: None)
  Receive Date: 20221114
  Receipt Date: 20221114
  Transmission Date: 20230113
  Serious: No
  Sender: FDA-Public Use
  Company Number: None

PATIENT
  Age: 40 Year
  Sex: Male
  Weight: 119.25 kg

DRUGS (5)
  1. WEGOVY [Suspect]
     Active Substance: SEMAGLUTIDE
     Indication: Weight decreased
     Dosage: OTHER QUANTITY : 1 INJECTION(S);?OTHER FREQUENCY : ONCE PER WEEK;?
     Route: 058
     Dates: start: 20221019
  2. TESTOSTERONE [Concomitant]
     Active Substance: TESTOSTERONE
  3. GONADOTROPHIN, CHORIONIC [Concomitant]
     Active Substance: GONADOTROPHIN, CHORIONIC
  4. ANASTROZOLE [Concomitant]
     Active Substance: ANASTROZOLE
  5. VITAMINS [Concomitant]
     Active Substance: VITAMINS

REACTIONS (11)
  - Disturbance in attention [None]
  - Erectile dysfunction [None]
  - Depression [None]
  - Depressed mood [None]
  - Fatigue [None]
  - Lethargy [None]
  - Hypersomnia [None]
  - Headache [None]
  - Injection site pruritus [None]
  - Injection site erythema [None]
  - Injection site swelling [None]

NARRATIVE: CASE EVENT DATE: 20221114
